FAERS Safety Report 4296462-3 (Version None)
Quarter: 2004Q1

REPORT INFORMATION
  Report Type: 
  Country: None (occurrence: None)
  Receive Date: 20040126
  Receipt Date: 20030822
  Transmission Date: 20041129
  Serious: No
  Sender: FDA-Public Use
  Company Number: USA030845162

PATIENT
  Age: 36 Year
  Sex: Female

DRUGS (6)
  1. STRATTERA [Suspect]
     Indication: ATTENTION DEFICIT/HYPERACTIVITY DISORDER
     Dosage: 40 MG/2 DAY
     Dates: start: 20030801
  2. KLONOPIN [Concomitant]
  3. PAXIL [Concomitant]
  4. WELLBUTRIN SR [Concomitant]
  5. TRILEPTAL [Concomitant]
  6. PROZAC [Concomitant]

REACTIONS (2)
  - CRYING [None]
  - DEPRESSION [None]
